FAERS Safety Report 10758144 (Version 1)
Quarter: 2015Q1

REPORT INFORMATION
  Report Type: Spontaneous
  Country: US (occurrence: None)
  Receive Date: 20150202
  Receipt Date: 20150202
  Transmission Date: 20150721
  Serious: No
  Sender: FDA-Public Use
  Company Number: None

PATIENT
  Age: 72 Year
  Sex: Female
  Weight: 70.31 kg

DRUGS (27)
  1. AMITRIPLYLINE [Concomitant]
  2. CELLGEVITY [Concomitant]
  3. EXPERIENCE [Concomitant]
  4. COLLINSONIA ROOT [Concomitant]
  5. LAMININE [Concomitant]
  6. PROPRANOLOL [Concomitant]
     Active Substance: PROPRANOLOL\PROPRANOLOL HYDROCHLORIDE
  7. BIOSIL [Concomitant]
  8. COOPER LIVER CHELATE [Concomitant]
  9. PLASMANEX 1 [Concomitant]
  10. STOOL SOFTNER [Concomitant]
  11. 3A MAGNESIA [Concomitant]
  12. ZYPAN [Concomitant]
  13. OCEAN PURE [Concomitant]
  14. AMBROTOSE [Concomitant]
     Active Substance: ALOE VERA LEAF\GLUCOSAMINE HYDROCHLORIDE\LARIX DECIDUA WOOD\TRAGACANTH
  15. CARDIO-PLUS [Concomitant]
  16. GABAPENTIN. [Concomitant]
     Active Substance: GABAPENTIN
  17. MAX N-FUZE [Concomitant]
     Active Substance: .ALPHA.-LIPOIC ACID\GREEN TEA LEAF\QUERCETIN\SELENIUM\TURMERIC\UBIDECARENONE\VITAMIN A\VITAMIN D
  18. THER-BIOTIC COMPLETE [Concomitant]
  19. BISACODYL. [Suspect]
     Active Substance: BISACODYL
     Indication: COLONOSCOPY
     Dosage: 5MG, 2 PILLS, ONCE AT 9:00 AM, BY MOUTH
     Route: 048
     Dates: start: 20150108, end: 20150108
  20. EICOSAMAX [Concomitant]
  21. LEVOTHYROXINE [Concomitant]
     Active Substance: LEVOTHYROXINE
  22. JOINT REVITALIZER [Concomitant]
  23. ST. JOHN^S WART [Concomitant]
  24. ASPIRIN. [Concomitant]
     Active Substance: ASPIRIN
  25. PROARGI-G PLUS [Concomitant]
  26. WHEAT GERM OIL [Concomitant]
     Active Substance: WHEAT GERM OIL
  27. IODINE COMPLEX [Concomitant]

REACTIONS (2)
  - Condition aggravated [None]
  - Essential tremor [None]

NARRATIVE: CASE EVENT DATE: 20150108
